FAERS Safety Report 23026951 (Version 2)
Quarter: 2023Q4

REPORT INFORMATION
  Report Type: Other
  Country: AU (occurrence: None)
  Receive Date: 20231004
  Receipt Date: 20231016
  Transmission Date: 20240109
  Serious: No
  Sender: FDA-Public Use
  Company Number: AU-ROCHE-3432964

PATIENT
  Sex: Female

DRUGS (1)
  1. OCREVUS [Suspect]
     Active Substance: OCRELIZUMAB
     Indication: Relapsing-remitting multiple sclerosis
     Route: 041
     Dates: start: 20221017

REACTIONS (3)
  - Herpes zoster [Not Recovered/Not Resolved]
  - Influenza [Unknown]
  - Malaise [Unknown]
